FAERS Safety Report 6285917-8 (Version None)
Quarter: 2009Q3

REPORT INFORMATION
  Report Type: 
  Country: None (occurrence: None)
  Receive Date: 20090728
  Receipt Date: 20090619
  Transmission Date: 20100115
  Serious: Yes (Other)
  Sender: FDA-Public Use
  Company Number: US-BAYER-200912213NA

PATIENT
  Age: 93 Year
  Sex: Male
  Weight: 96 kg

DRUGS (11)
  1. MAGNEVIST [Suspect]
     Indication: NUCLEAR MAGNETIC RESONANCE IMAGING BRAIN
     Dosage: NOT CLEAR EITHER 20ML OR 40ML, IN REPORT IT WAS WRITTEN 20ML FOR MRI, 20ML FOR MRA
     Dates: start: 20080731, end: 20080731
  2. PLAVIX [Concomitant]
  3. LOVASTATIN [Concomitant]
  4. ASPIRIN [Concomitant]
     Dosage: TOTAL DAILY DOSE: 81 MG  UNIT DOSE: 81 MG
     Route: 048
  5. AMIODARONE [Concomitant]
  6. IRON [Concomitant]
  7. FISH OIL [Concomitant]
  8. VITAMIN B-12 [Concomitant]
  9. DIPROSONE [Concomitant]
     Dosage: 0.05%
  10. ACETYLSALICYLIC ACID [Concomitant]
     Dosage: TOTAL DAILY DOSE: 81 MG
     Route: 048
  11. HYDROXYZINE [Concomitant]

REACTIONS (28)
  - ALOPECIA [None]
  - DRY SKIN [None]
  - ECZEMA [None]
  - FATIGUE [None]
  - HYPOAESTHESIA [None]
  - JOINT CONTRACTURE [None]
  - JOINT RANGE OF MOTION DECREASED [None]
  - MUSCULOSKELETAL STIFFNESS [None]
  - NEPHROGENIC SYSTEMIC FIBROSIS [None]
  - NEURODERMATITIS [None]
  - OCULAR ICTERUS [None]
  - OEDEMA [None]
  - OEDEMA PERIPHERAL [None]
  - PARAESTHESIA [None]
  - PETECHIAE [None]
  - PHOTODERMATOSIS [None]
  - PRURITUS [None]
  - RASH [None]
  - RASH MACULO-PAPULAR [None]
  - SENSATION OF HEAVINESS [None]
  - SKIN EXFOLIATION [None]
  - SKIN FIBROSIS [None]
  - SKIN HYPERPIGMENTATION [None]
  - SKIN INDURATION [None]
  - SKIN LESION [None]
  - SKIN TIGHTNESS [None]
  - VENOUS INSUFFICIENCY [None]
  - XEROSIS [None]
